FAERS Safety Report 10661787 (Version 4)
Quarter: 2015Q2

REPORT INFORMATION
  Report Type: Spontaneous
  Country: CN (occurrence: CN)
  Receive Date: 20141218
  Receipt Date: 20150521
  Transmission Date: 20150821
  Serious: Yes (Hospitalization, Other)
  Sender: FDA-Public Use
  Company Number: CN-NOVOPROD-432030

PATIENT
  Age: 57 Year
  Sex: Female
  Weight: 50 kg

DRUGS (4)
  1. NOVOLIN [Suspect]
     Active Substance: INSULIN HUMAN
     Dosage: 20 IU AT NOON AND 22 IU IN THE EVENING
     Route: 058
  2. NOVOLIN [Suspect]
     Active Substance: INSULIN HUMAN
     Indication: TYPE 2 DIABETES MELLITUS
     Dosage: 44 IU, QD (22 IU IN THE MORNING AND 22 IU IN THE EVENING)
     Route: 058
  3. NOVOLIN [Suspect]
     Active Substance: INSULIN HUMAN
     Dosage: 22 IU IN THE MORNING AND 20 IU IN THE EVENING
     Route: 058
     Dates: end: 20141209
  4. NOVOLIN [Suspect]
     Active Substance: INSULIN HUMAN
     Dosage: 22 IU IN THE MORNING AND 22 IU IN THE EVENING
     Route: 058
     Dates: start: 20141201

REACTIONS (4)
  - Diabetes mellitus inadequate control [Unknown]
  - Acidosis [Recovered/Resolved]
  - Blood glucose increased [Recovered/Resolved]
  - Product counterfeit [Unknown]

NARRATIVE: CASE EVENT DATE: 201412
